FAERS Safety Report 24958943 (Version 1)
Quarter: 2025Q1

REPORT INFORMATION
  Report Type: Other
  Country: TW (occurrence: TW)
  Receive Date: 20250212
  Receipt Date: 20250212
  Transmission Date: 20250409
  Serious: Yes (Death)
  Sender: ESJAY PHARMA
  Company Number: TW-ESJAY PHARMA-000136

PATIENT
  Age: 66 Year
  Sex: Female

DRUGS (1)
  1. IMATINIB [Suspect]
     Active Substance: IMATINIB
     Indication: Acute myeloid leukaemia

REACTIONS (1)
  - Drug ineffective [Fatal]
